FAERS Safety Report 17805767 (Version 1)
Quarter: 2020Q2

REPORT INFORMATION
  Report Type: Spontaneous
  Country: TW (occurrence: TW)
  Receive Date: 20200519
  Receipt Date: 20200519
  Transmission Date: 20200714
  Serious: Yes (Death, Other)
  Sender: FDA-Public Use
  Company Number: TW-VISTAPHARM, INC.-VER202005-000934

PATIENT

DRUGS (1)
  1. VALPROIC ACID. [Suspect]
     Active Substance: VALPROIC ACID
     Indication: SUICIDE ATTEMPT
     Dosage: UNKNOWN

REACTIONS (5)
  - Mental status changes [Unknown]
  - Completed suicide [Fatal]
  - Toxicity to various agents [Fatal]
  - Hypoglycaemia [Unknown]
  - Intentional overdose [Unknown]
